FAERS Safety Report 17484681 (Version 1)
Quarter: 2020Q1

REPORT INFORMATION
  Report Type: Spontaneous
  Country: FR (occurrence: FR)
  Receive Date: 20200302
  Receipt Date: 20200302
  Transmission Date: 20200409
  Serious: Yes (Other)
  Sender: FDA-Public Use
  Company Number: FR-MYLANLABS-2020M1021832

PATIENT
  Age: 48 Year
  Sex: Female
  Weight: 49.5 kg

DRUGS (2)
  1. PREDNISOLONE. [Suspect]
     Active Substance: PREDNISOLONE
     Indication: BACK PAIN
     Dosage: 40 MILLIGRAM, QD
     Route: 048
     Dates: start: 20170401, end: 20170402
  2. SKENAN [Suspect]
     Active Substance: MORPHINE SULFATE
     Indication: BACK PAIN
     Dosage: 2 DOSAGE FORM, QD
     Route: 048
     Dates: start: 20170327, end: 20170328

REACTIONS (2)
  - Abdominal rigidity [Recovered/Resolved]
  - Intestinal pseudo-obstruction [Recovered/Resolved]

NARRATIVE: CASE EVENT DATE: 20170403
